FAERS Safety Report 9524693 (Version 1)
Quarter: 2013Q3

REPORT INFORMATION
  Report Type: Spontaneous
  Country: GB (occurrence: None)
  Receive Date: 20130912
  Receipt Date: 20130912
  Transmission Date: 20140515
  Serious: Yes (Hospitalization, Other)
  Sender: FDA-Public Use
  Company Number: AUR-APL-2013-07477

PATIENT
  Age: 80 Year
  Sex: Female

DRUGS (9)
  1. AMOXICILLIN + CLAVULANIC ACID [Suspect]
     Indication: LOWER RESPIRATORY TRACT INFECTION
     Dosage: 1125 MG (375 MG, 3 IN 1 D), ORAL
     Route: 048
     Dates: start: 20120319, end: 20120320
  2. ERYTHROMYCIN (ERYTHROMYCIN) [Suspect]
     Indication: LOWER RESPIRATORY TRACT INFECTION
     Dosage: 500 MG (250 MG, 2 IN 1 D), ORAL
     Route: 048
     Dates: start: 20120313, end: 20120319
  3. AMLODIPINE (AMLODIPINE) [Concomitant]
  4. ASPIRIN (ACETYLSALICYLIC ACID) [Concomitant]
  5. BENDROFLUMETHIAZIDE (BENDROFLUMETHIAZIDE) [Concomitant]
  6. EZETIMIBE (EZETIMIBE) (TABLET) [Concomitant]
  7. FUROSEMIDE (FUROSEMIDE) [Concomitant]
  8. PERINDOPRIL (PERINDOPRIL) [Concomitant]
  9. PRAVASTATIN (PRAVASTATIN) [Concomitant]

REACTIONS (1)
  - Antibiotic level below therapeutic [None]
